FAERS Safety Report 4532856-6 (Version None)
Quarter: 2004Q4

REPORT INFORMATION
  Report Type: 
  Country: None (occurrence: None)
  Receive Date: 20041220
  Receipt Date: 20041213
  Transmission Date: 20050328
  Serious: Yes (Death)
  Sender: FDA-Public Use
  Company Number: OXCD20040002

PATIENT
  Age: 40 Year
  Sex: Male

DRUGS (1)
  1. OXYCODONE (SAME AS PERCOLONE) [Suspect]
     Dosage: PO
     Route: 048
     Dates: start: 20030101, end: 20030101

REACTIONS (5)
  - ACCIDENTAL DEATH [None]
  - CARDIOMEGALY [None]
  - HEPATIC STEATOSIS [None]
  - PULMONARY CONGESTION [None]
  - TOXICOLOGIC TEST ABNORMAL [None]
